FAERS Safety Report 11510136 (Version 1)
Quarter: 2015Q3

REPORT INFORMATION
  Report Type: Spontaneous
  Country: US (occurrence: US)
  Receive Date: 20150915
  Receipt Date: 20150915
  Transmission Date: 20151125
  Serious: No
  Sender: FDA-Public Use
  Company Number: US-JNJFOC-20150703105

PATIENT
  Age: 25 Year
  Sex: Female

DRUGS (2)
  1. TYLENOL EXTRA STRENGTH [Suspect]
     Active Substance: ACETAMINOPHEN
     Route: 048
  2. TYLENOL EXTRA STRENGTH [Suspect]
     Active Substance: ACETAMINOPHEN
     Indication: HEAD INJURY
     Dosage: DURATION OF SUSPECT DRUG IS 2 MONTHS
     Route: 048

REACTIONS (2)
  - Liver disorder [Unknown]
  - Gastric disorder [Unknown]
